FAERS Safety Report 16584900 (Version 1)
Quarter: 2019Q3

REPORT INFORMATION
  Report Type: Spontaneous
  Country: US (occurrence: US)
  Receive Date: 20190716
  Receipt Date: 20190716
  Transmission Date: 20191004
  Serious: No
  Sender: FDA-Public Use
  Company Number: None

PATIENT
  Age: 25 Year
  Sex: Male
  Weight: 90 kg

DRUGS (2)
  1. BUPROPRION HYDROCHLORIDE WE (XL) 24HR 150 [Suspect]
     Active Substance: BUPROPION HYDROCHLORIDE
     Indication: ANXIETY
     Dosage: ?          QUANTITY:90 TABLET(S);?
     Route: 048
     Dates: start: 20190613, end: 20190614
  2. BUPROPRION HYDROCHLORIDE WE (XL) 24HR 150 [Suspect]
     Active Substance: BUPROPION HYDROCHLORIDE
     Indication: DEPRESSION
     Dosage: ?          QUANTITY:90 TABLET(S);?
     Route: 048
     Dates: start: 20190613, end: 20190614

REACTIONS (4)
  - Depression [None]
  - Drug ineffective [None]
  - Product odour abnormal [None]
  - Anxiety [None]

NARRATIVE: CASE EVENT DATE: 20190714
